FAERS Safety Report 8452290-6 (Version None)
Quarter: 2012Q2

REPORT INFORMATION
  Report Type: 
  Country: None (occurrence: None)
  Receive Date: 20120620
  Receipt Date: 20120404
  Transmission Date: 20120825
  Serious: No
  Sender: FDA-Public Use
  Company Number: US-VERTEX PHARMACEUTICALS INC.-AE-2012-004910

PATIENT
  Sex: Male
  Weight: 87.168 kg

DRUGS (6)
  1. METHADONE HCL [Concomitant]
  2. PEG-INTRON [Concomitant]
     Indication: HEPATITIS C
     Route: 058
     Dates: start: 20120128
  3. CELEXA [Concomitant]
  4. TAMAZAPAM [Concomitant]
  5. INCIVEK [Suspect]
     Indication: HEPATITIS C
     Route: 048
     Dates: start: 20120128
  6. RIBAVIRIN [Concomitant]
     Indication: HEPATITIS C
     Route: 048
     Dates: start: 20120128

REACTIONS (8)
  - LACERATION [None]
  - DRY MOUTH [None]
  - RASH PRURITIC [None]
  - DYSGEUSIA [None]
  - BUCCAL MUCOSAL ROUGHENING [None]
  - FATIGUE [None]
  - SKIN CHAPPED [None]
  - ANGER [None]
